FAERS Safety Report 23035500 (Version 1)
Quarter: 2023Q4

REPORT INFORMATION
  Report Type: Spontaneous
  Country: DK (occurrence: DK)
  Receive Date: 20231006
  Receipt Date: 20231006
  Transmission Date: 20240110
  Serious: Yes (Life-Threatening, Hospitalization, Other)
  Sender: FDA-Public Use
  Company Number: None

PATIENT
  Age: 76 Year
  Sex: Male

DRUGS (5)
  1. ELIQUIS [Suspect]
     Active Substance: APIXABAN
     Indication: Thrombosis prophylaxis
     Dosage: FREQUENCY TIME: 1 DAY
     Route: 048
     Dates: start: 202307, end: 202308
  2. POTASSIUM CHLORIDE [Concomitant]
     Active Substance: POTASSIUM CHLORIDE
     Indication: Mineral supplementation
     Dates: start: 20230804
  3. MELATONIN ORIFARM [Concomitant]
     Indication: Insomnia
     Dates: start: 20230721
  4. BISOPROLOL MEDICAL VALLEY [Concomitant]
     Indication: Cardiac disorder
     Dates: start: 20230711
  5. FUROSEMIDE [Concomitant]
     Active Substance: FUROSEMIDE
     Indication: Diuretic therapy
     Dates: start: 20230804

REACTIONS (8)
  - Gait disturbance [Unknown]
  - Balance disorder [Unknown]
  - Sensory disturbance [Unknown]
  - Facial paralysis [Unknown]
  - Lip swelling [Unknown]
  - Facial paresis [Unknown]
  - Mouth swelling [Unknown]
  - Brain stem haemorrhage [Recovering/Resolving]

NARRATIVE: CASE EVENT DATE: 20230817
